FAERS Safety Report 13107883 (Version 1)
Quarter: 2017Q1

REPORT INFORMATION
  Report Type: Spontaneous
  Country: US (occurrence: US)
  Receive Date: 20170112
  Receipt Date: 20170112
  Transmission Date: 20170428
  Serious: No
  Sender: FDA-Public Use
  Company Number: US-ORION CORPORATION ORION PHARMA-ENTC2016-0257

PATIENT
  Age: 73 Year
  Sex: Male
  Weight: 63.49 kg

DRUGS (8)
  1. USP [Concomitant]
     Route: 065
     Dates: start: 20160403
  2. RANEXA [Concomitant]
     Active Substance: RANOLAZINE
     Route: 065
  3. NAMENDA [Concomitant]
     Active Substance: MEMANTINE HYDROCHLORIDE
     Route: 065
  4. RISPERDAL [Concomitant]
     Active Substance: RISPERIDONE
     Route: 065
     Dates: start: 2016
  5. USP [Concomitant]
     Dosage: STRENGTH: 150 MG
     Route: 065
     Dates: end: 201603
  6. MORPHINE [Suspect]
     Active Substance: MORPHINE
     Indication: PAIN
     Route: 042
     Dates: start: 201603, end: 201603
  7. CARBIDOPA, LEVODOPA AND ENTACAPONE TABLETS [Suspect]
     Active Substance: CARBIDOPA\ENTACAPONE\LEVODOPA
     Indication: PARKINSON^S DISEASE
     Dosage: STRENGTH: 150/37.5/200 MG
     Route: 065
     Dates: start: 2012
  8. DONEPEZIL. [Suspect]
     Active Substance: DONEPEZIL
     Dosage: STRENGTH: 23 MG
     Route: 065

REACTIONS (6)
  - Motor dysfunction [Recovering/Resolving]
  - Wrong technique in product usage process [Recovered/Resolved]
  - Aggression [Recovered/Resolved]
  - Delusion [Recovered/Resolved]
  - Constipation [Not Recovered/Not Resolved]
  - Hallucination [Recovered/Resolved]

NARRATIVE: CASE EVENT DATE: 201603
